FAERS Safety Report 25136886 (Version 1)
Quarter: 2025Q1

REPORT INFORMATION
  Report Type: Spontaneous
  Country: PK (occurrence: PK)
  Receive Date: 20250328
  Receipt Date: 20250328
  Transmission Date: 20250408
  Serious: Yes (Hospitalization, Other)
  Sender: PHARMACEUTICAL ASSOC
  Company Number: PK-PAIPHARMA-2025-PK-000003

PATIENT
  Age: 39 Year
  Sex: Female

DRUGS (2)
  1. PREDNISOLONE [Suspect]
     Active Substance: PREDNISOLONE
     Indication: Platelet count decreased
     Dates: start: 20230407
  2. DELTACORTRIL [Suspect]
     Active Substance: PREDNISOLONE
     Indication: Platelet count decreased
     Dates: start: 20230407

REACTIONS (1)
  - Pulmonary embolism [Recovered/Resolved]
